FAERS Safety Report 19676607 (Version 2)
Quarter: 2021Q4

REPORT INFORMATION
  Report Type: Spontaneous
  Country: US (occurrence: US)
  Receive Date: 20210810
  Receipt Date: 20211001
  Transmission Date: 20220303
  Serious: Yes (Death, Hospitalization, Other)
  Sender: FDA-Public Use
  Company Number: US-SUN PHARMACEUTICAL INDUSTRIES LTD-2021R1-305323

PATIENT
  Age: 60 Year
  Sex: Female

DRUGS (1)
  1. EPOPROSTENOL [Suspect]
     Active Substance: EPOPROSTENOL
     Indication: Pulmonary arterial hypertension
     Dosage: 24 NG/KG/MIN, CONTINUOUS
     Route: 042
     Dates: start: 20210322

REACTIONS (8)
  - Hypopnoea [Unknown]
  - Asthenia [Unknown]
  - Skin irritation [Unknown]
  - Diarrhoea [Unknown]
  - Pain [Unknown]
  - Mental status changes [Unknown]
  - Respiratory failure [Unknown]
  - Death [Fatal]

NARRATIVE: CASE EVENT DATE: 20210525
